FAERS Safety Report 5774357-3 (Version None)
Quarter: 2008Q2

REPORT INFORMATION
  Report Type: 
  Country: None (occurrence: None)
  Receive Date: 20080616
  Receipt Date: 20080609
  Transmission Date: 20081010
  Serious: Yes (Other)
  Sender: FDA-Public Use
  Company Number: PHEH2006US09856

PATIENT
  Sex: Female
  Weight: 70.294 kg

DRUGS (4)
  1. ESTRADERM [Suspect]
     Indication: MENOPAUSAL SYMPTOMS
     Dates: start: 19860101, end: 20010101
  2. AYGESTIN [Suspect]
     Indication: MENOPAUSAL SYMPTOMS
     Dates: start: 19860101, end: 19990101
  3. PREMPRO [Suspect]
     Indication: MENOPAUSAL SYMPTOMS
     Dates: start: 19990101, end: 20010101
  4. TAMOXIFEN CITRATE [Suspect]
     Indication: BREAST CANCER
     Dates: start: 20010101

REACTIONS (15)
  - ANTINUCLEAR ANTIBODY POSITIVE [None]
  - AUTOIMMUNE THYROIDITIS [None]
  - BREAST CANCER [None]
  - BREAST MASS [None]
  - EYE OPERATION [None]
  - INJURY [None]
  - MALIGNANT BREAST LUMP REMOVAL [None]
  - MENISCUS LESION [None]
  - MENISCUS OPERATION [None]
  - OESTROGEN RECEPTOR ASSAY POSITIVE [None]
  - OSTEOPENIA [None]
  - PROGESTERONE RECEPTOR ASSAY POSITIVE [None]
  - RETINAL DETACHMENT [None]
  - RETINOPATHY PROLIFERATIVE [None]
  - SOFT TISSUE DISORDER [None]
